FAERS Safety Report 4608013-1 (Version None)
Quarter: 2005Q1

REPORT INFORMATION
  Report Type: 
  Country: None (occurrence: None)
  Receive Date: 20050228
  Receipt Date: 20050131
  Transmission Date: 20050727
  Serious: No
  Sender: FDA-Public Use
  Company Number: FABR-10993

PATIENT
  Age: 10 Year
  Sex: Male

DRUGS (1)
  1. FABRAZYME [Suspect]
     Indication: FABRY'S DISEASE

REACTIONS (4)
  - DYSPNOEA [None]
  - ERYTHEMA [None]
  - FALL [None]
  - SWELLING FACE [None]
